FAERS Safety Report 7974483-4 (Version None)
Quarter: 2011Q4

REPORT INFORMATION
  Report Type: 
  Country: None (occurrence: None)
  Receive Date: 20111213
  Receipt Date: 20111202
  Transmission Date: 20120403
  Serious: Yes (Other)
  Sender: FDA-Public Use
  Company Number: US-CELGENEUS-163-21880-11112978

PATIENT
  Sex: Female

DRUGS (1)
  1. REVLIMID [Suspect]
     Dosage: 225 MG
     Route: 048
     Dates: start: 20111118, end: 20111118

REACTIONS (5)
  - ASTHENIA [None]
  - ACCIDENTAL EXPOSURE [None]
  - DRUG DISPENSING ERROR [None]
  - OVERDOSE [None]
  - SYNCOPE [None]
